FAERS Safety Report 10516020 (Version 1)
Quarter: 2014Q4

REPORT INFORMATION
  Report Type: Spontaneous
  Country: US (occurrence: US)
  Receive Date: 20141014
  Receipt Date: 20141014
  Transmission Date: 20150528
  Serious: Yes (Hospitalization)
  Sender: FDA-Public Use
  Company Number: PHHY2014US133368

PATIENT
  Age: 25 Year
  Sex: Female

DRUGS (8)
  1. BETAMETHASONE [Suspect]
     Active Substance: BETAMETHASONE
     Indication: PRODUCT USED FOR UNKNOWN INDICATION
     Route: 065
  2. CALCIUM GLUCONATE INJ USP [Suspect]
     Active Substance: CALCIUM GLUCONATE
     Indication: MUSCLE CONTRACTURE
     Dosage: 40 ML, UNK
     Route: 042
  3. MAGNESIUM SULFATE. [Suspect]
     Active Substance: MAGNESIUM SULFATE
     Indication: TOCOLYSIS
     Dosage: 6 G, LOADING DOSE
     Route: 065
  4. MAGNESIUM SULFATE. [Suspect]
     Active Substance: MAGNESIUM SULFATE
     Dosage: 1.5 G/HR, UNK
     Route: 065
  5. MAGNESIUM SULFATE. [Suspect]
     Active Substance: MAGNESIUM SULFATE
     Dosage: 3 G/HR, MAINTENANCE
     Route: 065
  6. NIFEDIPINE. [Suspect]
     Active Substance: NIFEDIPINE
     Indication: TOCOLYSIS
     Dosage: 10 MG, UNK
     Route: 048
  7. MAGNESIUM SULFATE. [Suspect]
     Active Substance: MAGNESIUM SULFATE
     Dosage: 132 G, OVER 55 HOURS
     Route: 042
  8. NIFEDIPINE. [Suspect]
     Active Substance: NIFEDIPINE
     Dosage: 20 MG, UNK
     Route: 048

REACTIONS (10)
  - Muscle contracture [Recovered/Resolved]
  - Tetany [Unknown]
  - Chest discomfort [Unknown]
  - Musculoskeletal stiffness [Unknown]
  - Hypocalcaemia [Unknown]
  - Blood pressure decreased [Unknown]
  - Pain in extremity [Unknown]
  - Drug intolerance [Unknown]
  - Maternal exposure during pregnancy [Unknown]
  - Premature labour [Unknown]
